FAERS Safety Report 24424265 (Version 1)
Quarter: 2024Q4

REPORT INFORMATION
  Report Type: Spontaneous
  Country: US (occurrence: US)
  Receive Date: 20241010
  Receipt Date: 20241010
  Transmission Date: 20250114
  Serious: Yes (Hospitalization)
  Sender: NOVARTIS
  Company Number: US-002147023-NVSC2024US198913

PATIENT
  Sex: Male
  Weight: 80 kg

DRUGS (1)
  1. SCEMBLIX [Suspect]
     Active Substance: ASCIMINIB HYDROCHLORIDE
     Indication: Acute lymphocytic leukaemia
     Dosage: 80 MG, QD
     Route: 048

REACTIONS (1)
  - Leukaemia recurrent [Unknown]
